FAERS Safety Report 9201668 (Version 1)
Quarter: 2013Q1

REPORT INFORMATION
  Report Type: Spontaneous
  Country: US (occurrence: None)
  Receive Date: 20130327
  Receipt Date: 20130327
  Transmission Date: 20140127
  Serious: No
  Sender: FDA-Public Use
  Company Number: MERCK1212USA007041

PATIENT
  Sex: 0

DRUGS (2)
  1. TICE BCG LIVE (BCG LIVE) POWDER FOR INSTILLATION FLUID [Suspect]
  2. RECONSTITUTION ACCESSORIES [Concomitant]

REACTIONS (3)
  - Bladder stenosis [None]
  - Drug dose omission [None]
  - Device malfunction [None]
